FAERS Safety Report 11103673 (Version 1)
Quarter: 2015Q2

REPORT INFORMATION
  Report Type: Spontaneous
  Country: US (occurrence: None)
  Receive Date: 20150508
  Receipt Date: 20150508
  Transmission Date: 20150821
  Serious: No
  Sender: FDA-Public Use
  Company Number: None

PATIENT
  Age: 2 Year
  Sex: Male
  Weight: 13.06 kg

DRUGS (2)
  1. CHILDRENS MOTRIN [Concomitant]
     Active Substance: IBUPROFEN
  2. CEFDINIR. [Suspect]
     Active Substance: CEFDINIR

REACTIONS (5)
  - Aphasia [None]
  - Sleep terror [None]
  - Agitation [None]
  - Aggression [None]
  - Frustration [None]
